FAERS Safety Report 8583558-0 (Version None)
Quarter: 2012Q3

REPORT INFORMATION
  Report Type: 
  Country: None (occurrence: None)
  Receive Date: 20120809
  Receipt Date: 20120719
  Transmission Date: 20120928
  Serious: No
  Sender: FDA-Public Use
  Company Number: US-ASTRAZENECA-2012SE50858

PATIENT
  Age: 62 Year
  Sex: Female
  Weight: 53.5 kg

DRUGS (2)
  1. ARIMIDEX [Suspect]
     Indication: BREAST CANCER
     Route: 048
  2. TYLENOL ARTHRITIS [Concomitant]

REACTIONS (5)
  - PAIN [None]
  - PAIN IN EXTREMITY [None]
  - SLEEP DISORDER DUE TO A GENERAL MEDICAL CONDITION [None]
  - ADVERSE EVENT [None]
  - HOT FLUSH [None]
